FAERS Safety Report 5705533-3 (Version None)
Quarter: 2008Q2

REPORT INFORMATION
  Report Type: 
  Country: None (occurrence: None)
  Receive Date: 20080415
  Receipt Date: 20080404
  Transmission Date: 20081010
  Serious: Yes (Other)
  Sender: FDA-Public Use
  Company Number: FR-ROCHE-557166

PATIENT
  Age: 81 Year
  Sex: Female

DRUGS (4)
  1. BONIVA [Suspect]
     Indication: DRUG USE FOR UNKNOWN INDICATION
     Route: 048
     Dates: start: 20071117, end: 20080122
  2. MEMANTINE HCL [Concomitant]
  3. SERTRALINE [Concomitant]
     Dosage: DRUG REPORTED AS SERTALINE
  4. DEPAKOTE [Concomitant]

REACTIONS (2)
  - CHEILITIS [None]
  - STOMATITIS [None]
